FAERS Safety Report 8004986-8 (Version None)
Quarter: 2011Q4

REPORT INFORMATION
  Report Type: 
  Country: None (occurrence: None)
  Receive Date: 20111223
  Receipt Date: 20111214
  Transmission Date: 20120403
  Serious: Yes (Other)
  Sender: FDA-Public Use
  Company Number: AT-B.I. PHARMACEUTICALS,INC./RIDGEFIELD-2011-EU-00558GD

PATIENT
  Sex: Male

DRUGS (19)
  1. PRAMIPEXOLE DIHYDROCHLORIDE [Suspect]
     Dosage: 2.8 MG
     Dates: start: 20060901, end: 20100601
  2. PRAMIPEXOLE DIHYDROCHLORIDE [Suspect]
     Dosage: 2.1 MG
     Route: 048
     Dates: start: 20110301
  3. STALEVO 100 [Suspect]
     Indication: PARKINSON'S DISEASE
     Dosage: L-DOPA 100
     Dates: start: 20080401, end: 20100601
  4. MADOPAR [Suspect]
     Indication: PARKINSON'S DISEASE
     Dosage: 100/25, 3 X 1
     Route: 048
     Dates: start: 20071001, end: 20080401
  5. MADOPAR LT [Suspect]
     Indication: PARKINSON'S DISEASE
     Dates: start: 20080401
  6. MADOPAR LT [Suspect]
     Dosage: 400 MG
     Dates: start: 20080401, end: 20100601
  7. AZILECT [Concomitant]
     Indication: PARKINSON'S DISEASE
     Dosage: 1 MG
     Dates: start: 20100601
  8. PRAMIPEXOLE DIHYDROCHLORIDE [Suspect]
     Dates: start: 20100601, end: 20110301
  9. MIRTAZAPINE [Suspect]
     Indication: ANTIDEPRESSANT THERAPY
     Dosage: 15 MG
     Dates: start: 20050901, end: 20090101
  10. PRAMIPEXOLE DIHYDROCHLORIDE [Suspect]
     Dosage: 1.4 MG
     Dates: start: 20050901, end: 20060901
  11. MADOPAR [Suspect]
     Dosage: 100/25, EVERY 3 H MAX. OF L-DOPA 700 MG
     Route: 048
     Dates: start: 20080401
  12. MADOPAR [Suspect]
     Dosage: 100/25 IN THE EVENING AS NEEDED
     Route: 048
     Dates: start: 20110301
  13. PK-MERZ [Suspect]
     Indication: PARKINSON'S DISEASE
     Dosage: 200 MG
     Dates: start: 20050101
  14. PRAMIPEXOLE DIHYDROCHLORIDE [Suspect]
     Indication: PARKINSON'S DISEASE
     Dosage: 1.05 MG
     Dates: start: 20041101
  15. PRAMIPEXOLE DIHYDROCHLORIDE [Suspect]
     Dosage: 0.7 MG
     Dates: start: 20050101, end: 20050901
  16. PRAMIPEXOLE DIHYDROCHLORIDE [Suspect]
     Dosage: 2.1 MG
     Route: 048
     Dates: start: 20100601, end: 20110301
  17. MADOPAR [Suspect]
     Dosage: 100/25, 4 X 1
     Route: 048
     Dates: start: 20080401, end: 20100601
  18. STALEVO 100 [Suspect]
     Dosage: L-DOPA 100
     Dates: start: 20110301
  19. SEROQUEL [Concomitant]
     Indication: ANTIDEPRESSANT THERAPY
     Dosage: 25 - 50 MG
     Dates: start: 20090101

REACTIONS (13)
  - STEREOTYPY [None]
  - HYPOMANIA [None]
  - NAUSEA [None]
  - IMPULSE-CONTROL DISORDER [None]
  - AUTONOMIC NERVOUS SYSTEM IMBALANCE [None]
  - FATIGUE [None]
  - ANXIETY [None]
  - DOPAMINE DYSREGULATION SYNDROME [None]
  - HYPERSEXUALITY [None]
  - PAIN [None]
  - HALLUCINATION, VISUAL [None]
  - PANIC REACTION [None]
  - MENTAL DISORDER [None]
